FAERS Safety Report 23680139 (Version 1)
Quarter: 2024Q1

REPORT INFORMATION
  Report Type: Report from Study
  Country: CA (occurrence: CA)
  Receive Date: 20240327
  Receipt Date: 20240327
  Transmission Date: 20240409
  Serious: Yes (Hospitalization, Other)
  Sender: FDA-Public Use
  Company Number: CA-JNJFOC-20230557294

PATIENT
  Age: 40 Year
  Sex: Female

DRUGS (1)
  1. REMICADE [Suspect]
     Active Substance: INFLIXIMAB
     Indication: Crohn^s disease
     Dosage: EXP JN-2026
     Route: 041
     Dates: start: 20180217

REACTIONS (3)
  - Hysterectomy [Unknown]
  - Cholecystitis [Recovering/Resolving]
  - Frequent bowel movements [Unknown]

NARRATIVE: CASE EVENT DATE: 20240218
